FAERS Safety Report 5264219-2 (Version None)
Quarter: 2007Q1

REPORT INFORMATION
  Report Type: 
  Country: None (occurrence: None)
  Receive Date: 20070313
  Receipt Date: 20070301
  Transmission Date: 20070707
  Serious: Yes (Other)
  Sender: FDA-Public Use
  Company Number: US-PFIZER INC-2007016968

PATIENT
  Sex: Female
  Weight: 134.7 kg

DRUGS (5)
  1. LIPITOR [Suspect]
     Indication: BLOOD CHOLESTEROL INCREASED
  2. PROCARDIA [Concomitant]
  3. COZAAR [Concomitant]
  4. POTASSIUM ACETATE [Concomitant]
  5. FUROSEMIDE [Concomitant]

REACTIONS (7)
  - ARTHRITIS [None]
  - ERUCTATION [None]
  - EXOSTOSIS [None]
  - HYPERTENSION [None]
  - NERVOUSNESS [None]
  - PALPITATIONS [None]
  - STOMACH DISCOMFORT [None]
